FAERS Safety Report 8584363 (Version 6)
Quarter: 2012Q4

REPORT INFORMATION
  Report Type: Report from Study
  Country: DE (occurrence: DE)
  Receive Date: 20120529
  Receipt Date: 20120828
  Transmission Date: 20130627
  Serious: Yes (Hospitalization)
  Sender: FDA-Public Use
  Company Number: DE-UCBSA-057756

PATIENT
  Age: 37 Year
  Sex: Male
  Weight: 81.3 kg

DRUGS (3)
  1. CERTOLIZUMAB PEGOL [Suspect]
     Indication: PSORIATIC ARTHROPATHY
     Route: 058
     Dates: start: 201203, end: 20120510
  2. CERTOLIZUMAB PEGOL [Suspect]
     Indication: PSORIATIC ARTHROPATHY
     Route: 058
     Dates: start: 20110328, end: 20120229
  3. PENICILLIN [Concomitant]
     Indication: TONSILLITIS
     Dates: start: 20120502, end: 20120514

REACTIONS (1)
  - Myocarditis [Recovered/Resolved]
